FAERS Safety Report 24956894 (Version 1)
Quarter: 2025Q1

REPORT INFORMATION
  Report Type: Spontaneous
  Country: EG (occurrence: EG)
  Receive Date: 20250211
  Receipt Date: 20250211
  Transmission Date: 20250408
  Serious: Yes (Other)
  Sender: PFIZER
  Company Number: EG-PFIZER INC-PV202500014180

PATIENT
  Age: 72 Year
  Sex: Male
  Weight: 90 kg

DRUGS (3)
  1. ADRIAMYCIN [Suspect]
     Active Substance: DOXORUBICIN HYDROCHLORIDE
     Indication: Bone cancer
     Dosage: 95 MG, EVERY 3 WEEKS (D1-D3; CYCLE 1)
     Route: 042
     Dates: start: 20241212
  2. CYCLOPHOSPHAMIDE [Suspect]
     Active Substance: CYCLOPHOSPHAMIDE
     Indication: Bone cancer
     Dosage: 1425 MG, EVERY 3 WEEKS (D1-D3; CYCLE 1)
     Route: 042
     Dates: start: 20241212
  3. MESNA [Concomitant]
     Active Substance: MESNA
     Dosage: 1.83 MG, EVERY 3 WEEKS (D1-D3; CYCLE 1)
     Route: 042

REACTIONS (2)
  - Hypochromic anaemia [Recovered/Resolved]
  - Thrombocytosis [Recovered/Resolved]

NARRATIVE: CASE EVENT DATE: 20250101
